FAERS Safety Report 8604484 (Version 4)
Quarter: 2018Q3

REPORT INFORMATION
  Report Type: Spontaneous
  Country: GB (occurrence: GB)
  Receive Date: 20120608
  Receipt Date: 20180912
  Transmission Date: 20181010
  Serious: Yes (Hospitalization)
  Sender: FDA-Public Use
  Company Number: PHHY2012GB047362

PATIENT
  Age: 36 Year
  Sex: Female

DRUGS (4)
  1. CARBAMAZEPINE. [Suspect]
     Active Substance: CARBAMAZEPINE
     Indication: EPILEPSY
     Dosage: UNK
     Route: 065
  2. CARBAMAZEPINE. [Interacting]
     Active Substance: CARBAMAZEPINE
     Indication: SEIZURE
  3. IMPLANON [Interacting]
     Active Substance: ETONOGESTREL
     Indication: CONTRACEPTION
     Dosage: UNK
     Route: 059
  4. IMPLANON [Interacting]
     Active Substance: ETONOGESTREL
     Indication: EPILEPSY

REACTIONS (8)
  - Thrombosis [Recovering/Resolving]
  - Abdominal pain lower [Recovering/Resolving]
  - Vaginal haemorrhage [Recovering/Resolving]
  - Abortion [Recovered/Resolved]
  - Drug interaction [Recovered/Resolved]
  - Drug ineffective [Recovered/Resolved]
  - Ruptured ectopic pregnancy [Recovered/Resolved]
  - Exposure during pregnancy [Unknown]
